FAERS Safety Report 7207721-6 (Version None)
Quarter: 2011Q1

REPORT INFORMATION
  Report Type: 
  Country: None (occurrence: None)
  Receive Date: 20110103
  Receipt Date: 20101227
  Transmission Date: 20110831
  Serious: Yes (Hospitalization, Other)
  Sender: FDA-Public Use
  Company Number: JP-JNJFOC-20101209008

PATIENT
  Sex: Female
  Weight: 39 kg

DRUGS (7)
  1. SELBEX [Concomitant]
     Indication: PROPHYLAXIS
     Route: 048
  2. RISPERDAL [Concomitant]
     Indication: SENILE DEMENTIA
     Route: 048
  3. SIMVASTATIN [Concomitant]
     Indication: HYPERLIPIDAEMIA
     Route: 048
  4. CRAVIT [Suspect]
     Indication: PYREXIA
     Route: 048
  5. PL GRAN [Suspect]
     Indication: PYREXIA
     Route: 048
  6. BUFFERIN [Concomitant]
     Indication: THROMBOSIS
     Route: 048
  7. FERRUM [Concomitant]
     Indication: ANAEMIA
     Route: 048

REACTIONS (2)
  - INCORRECT DOSE ADMINISTERED [None]
  - MUSCULOSKELETAL STIFFNESS [None]
